FAERS Safety Report 8051924-8 (Version None)
Quarter: 2012Q1

REPORT INFORMATION
  Report Type: 
  Country: None (occurrence: None)
  Receive Date: 20120118
  Receipt Date: 20120111
  Transmission Date: 20120608
  Serious: Yes (Hospitalization, Other)
  Sender: FDA-Public Use
  Company Number: US-AMGEN-USASP2011069894

PATIENT
  Age: 62 Year
  Sex: Female
  Weight: 92.8 kg

DRUGS (13)
  1. ARANESP [Suspect]
     Dosage: 100 MUG, QWK
     Route: 058
     Dates: start: 20110413, end: 20110518
  2. ARANESP [Suspect]
     Dosage: 100 MUG, QWK
     Route: 058
     Dates: start: 20110810, end: 20111005
  3. CITALOPRAM HYDROBROMIDE [Concomitant]
     Dosage: UNK
     Dates: start: 20110223
  4. FERROUS SULFATE TAB [Concomitant]
     Dosage: UNK
     Dates: start: 20110322, end: 20120104
  5. ARANESP [Suspect]
     Indication: ANAEMIA
     Dosage: 100 MUG, ONE TIME DOSE
     Route: 058
     Dates: start: 20110316, end: 20110316
  6. FOLIC ACID [Concomitant]
     Dosage: UNK
     Dates: start: 20110322, end: 20120104
  7. ARANESP [Suspect]
     Dosage: 150 MUG, QWK
     Route: 058
     Dates: start: 20111005, end: 20111228
  8. RIBAVIRIN [Suspect]
     Dosage: UNK
     Dates: start: 20110223, end: 20111123
  9. LISINOPRIL [Concomitant]
     Dosage: UNK
  10. ARANESP [Suspect]
     Dosage: 100 MUG, Q2WK
     Route: 058
     Dates: start: 20110518, end: 20110810
  11. INTERFERON [Suspect]
     Dosage: UNK
     Dates: start: 20110322, end: 20111216
  12. HYDROCHLOROTHIAZIDE [Concomitant]
     Dosage: UNK
  13. VITAMIN B12                        /00056201/ [Concomitant]
     Dosage: UNK
     Dates: start: 20110322, end: 20120104

REACTIONS (3)
  - APLASIA PURE RED CELL [None]
  - ANAEMIA [None]
  - SYNCOPE [None]
